FAERS Safety Report 24604099 (Version 1)
Quarter: 2024Q4

REPORT INFORMATION
  Report Type: Spontaneous
  Country: US (occurrence: US)
  Receive Date: 20241111
  Receipt Date: 20241111
  Transmission Date: 20250114
  Serious: No
  Sender: Kenvue
  Company Number: US-KENVUE-20241031211

PATIENT
  Age: 88 Year
  Sex: Female

DRUGS (2)
  1. TYLENOL [Suspect]
     Active Substance: ACETAMINOPHEN
     Indication: Pain
     Dosage: UNK
     Route: 065
     Dates: start: 202410
  2. AVEENO ECZEMA THERAPY NIGHTTIME ITCH RELIEF BALM [Concomitant]
     Active Substance: OATMEAL
     Indication: Eczema
     Dosage: UNK UNK, ONCE A DAY
     Route: 061
     Dates: start: 20241013

REACTIONS (1)
  - Product use in unapproved indication [Unknown]

NARRATIVE: CASE EVENT DATE: 20241001
